FAERS Safety Report 7934811-2 (Version None)
Quarter: 2011Q4

REPORT INFORMATION
  Report Type: 
  Country: None (occurrence: None)
  Receive Date: 20111122
  Receipt Date: 20111025
  Transmission Date: 20120403
  Serious: Yes (Disabling)
  Sender: FDA-Public Use
  Company Number: DK-SANOFI-AVENTIS-2011SA049237

PATIENT
  Sex: Female
  Weight: 53 kg

DRUGS (7)
  1. EPIRUBICIN [Suspect]
     Indication: BREAST CANCER
     Route: 042
     Dates: start: 20091019
  2. CYCLOPHOSPHAMIDE [Concomitant]
     Route: 065
     Dates: start: 20091101
  3. EPIRUBICIN [Suspect]
     Route: 065
     Dates: start: 20091101
  4. CYCLOPHOSPHAMIDE [Concomitant]
     Indication: BREAST CANCER
     Route: 042
     Dates: start: 20090928
  5. TAXOTERE [Suspect]
     Route: 041
     Dates: start: 20090928, end: 20090928
  6. TAXOTERE [Suspect]
     Indication: BREAST CANCER
     Route: 041
     Dates: start: 20090928, end: 20090928
  7. NEULASTA [Concomitant]
     Indication: PROPHYLAXIS
     Route: 058
     Dates: start: 20090929

REACTIONS (18)
  - PARALYSIS [None]
  - PERIPHERAL MOTOR NEUROPATHY [None]
  - COORDINATION ABNORMAL [None]
  - DISABILITY [None]
  - BURNING SENSATION [None]
  - HYPOAESTHESIA [None]
  - ARTHRALGIA [None]
  - CONDITION AGGRAVATED [None]
  - FATIGUE [None]
  - BACK PAIN [None]
  - MYALGIA [None]
  - DYSGEUSIA [None]
  - PAIN [None]
  - NEURITIS [None]
  - PARAESTHESIA [None]
  - WALKING DISABILITY [None]
  - ASTHENIA [None]
  - SENSORY DISTURBANCE [None]
